FAERS Safety Report 6599043-1 (Version None)
Quarter: 2010Q1

REPORT INFORMATION
  Report Type: 
  Country: None (occurrence: None)
  Receive Date: 20100224
  Receipt Date: 20090721
  Transmission Date: 20100710
  Serious: No
  Sender: FDA-Public Use
  Company Number: US-BRISTOL-MYERS SQUIBB COMPANY-14709919

PATIENT
  Sex: Female

DRUGS (1)
  1. GLUCOPHAGE [Suspect]

REACTIONS (1)
  - DRUG INEFFECTIVE [None]
